FAERS Safety Report 4712460-7 (Version None)
Quarter: 2005Q3

REPORT INFORMATION
  Report Type: 
  Country: None (occurrence: None)
  Receive Date: 20050711
  Receipt Date: 20050629
  Transmission Date: 20060218
  Serious: Yes (Hospitalization, Other)
  Sender: FDA-Public Use
  Company Number: 2005055015

PATIENT
  Sex: Female

DRUGS (10)
  1. CELEBREX [Suspect]
     Indication: ILL-DEFINED DISORDER
     Dosage: 200 MG ORAL
     Route: 048
     Dates: start: 20001101, end: 20050223
  2. METOPROLOL TARTRATE [Concomitant]
  3. GLYBURIDE [Concomitant]
  4. OXYBUTYNIN CHLORIDE [Concomitant]
  5. ALTACE [Concomitant]
  6. CENTRUM SILVER (ASCORBIC ACID, CALCIUM, MINERALS NOS, RETINOL, TOCOPHE [Concomitant]
  7. ASPIRIN [Concomitant]
  8. ACIPHEX [Concomitant]
  9. FISH OIL (FISH OIL) [Concomitant]
  10. LIPITOR [Concomitant]

REACTIONS (5)
  - ATRIAL FIBRILLATION [None]
  - CARDIAC DISORDER [None]
  - CORONARY ARTERY ATHEROSCLEROSIS [None]
  - MYOCARDIAL INFARCTION [None]
  - TRANSIENT ISCHAEMIC ATTACK [None]
